FAERS Safety Report 19758177 (Version 1)
Quarter: 2021Q3

REPORT INFORMATION
  Report Type: Spontaneous
  Country: GB (occurrence: GB)
  Receive Date: 20210828
  Receipt Date: 20210828
  Transmission Date: 20211014
  Serious: Yes (Death, Hospitalization, Other)
  Sender: FDA-Public Use
  Company Number: GB-AMICI-2021AMILIT00025

PATIENT
  Age: 16 Year
  Sex: Female

DRUGS (2)
  1. DICLOFENAC [Suspect]
     Active Substance: DICLOFENAC
     Indication: PRODUCT USED FOR UNKNOWN INDICATION
     Route: 065
  2. MOVICOL PLAIN [Interacting]
     Active Substance: POLYETHYLENE GLYCOL 3350\POTASSIUM CHLORIDE\SODIUM BICARBONATE\SODIUM CHLORIDE
     Indication: CONSTIPATION
     Route: 065

REACTIONS (8)
  - Condition aggravated [Fatal]
  - Sinus tachycardia [Unknown]
  - Abdominal tenderness [Unknown]
  - Constipation [Unknown]
  - Abdominal distension [Unknown]
  - Gastric ulcer perforation [Fatal]
  - Abdominal discomfort [Unknown]
  - Peritonitis [Fatal]
